FAERS Safety Report 5983996-6 (Version None)
Quarter: 2008Q4

REPORT INFORMATION
  Report Type: 
  Country: None (occurrence: None)
  Receive Date: 20081208
  Receipt Date: 20081201
  Transmission Date: 20090506
  Serious: Yes (Other)
  Sender: FDA-Public Use
  Company Number: BR-ASTRAZENECA-2008UW26823

PATIENT
  Age: 79 Year
  Sex: Female
  Weight: 59 kg

DRUGS (1)
  1. NEXIUM [Suspect]
     Indication: GASTRIC DISORDER
     Route: 048
     Dates: start: 20081122, end: 20081122

REACTIONS (5)
  - DYSPNOEA [None]
  - EYE IRRITATION [None]
  - GINGIVAL SWELLING [None]
  - SWELLING [None]
  - SWOLLEN TONGUE [None]
